FAERS Safety Report 5446117-4 (Version None)
Quarter: 2007Q3

REPORT INFORMATION
  Report Type: 
  Country: None (occurrence: None)
  Receive Date: 20070907
  Receipt Date: 20070827
  Transmission Date: 20080115
  Serious: No
  Sender: FDA-Public Use
  Company Number: FR-AMGEN-UK230786

PATIENT
  Sex: Male

DRUGS (10)
  1. MIMPARA [Suspect]
     Indication: HYPERPARATHYROIDISM SECONDARY
     Route: 048
     Dates: start: 20061223
  2. RENAGEL [Concomitant]
     Route: 065
  3. ALLOPURINOL [Concomitant]
     Route: 065
  4. CALCIUM [Concomitant]
     Route: 065
  5. ARANESP [Concomitant]
     Route: 065
  6. ATACAND [Concomitant]
     Route: 065
  7. FOSRENOL [Concomitant]
     Route: 048
     Dates: start: 20070114, end: 20070604
  8. VENOFER [Concomitant]
     Route: 030
     Dates: start: 20060615
  9. VITAMIN B-12 [Concomitant]
  10. SPECIAFOLDINE [Concomitant]

REACTIONS (3)
  - FEELING HOT [None]
  - FORMICATION [None]
  - INCORRECT DOSE ADMINISTERED [None]
